FAERS Safety Report 11081867 (Version 2)
Quarter: 2015Q2

REPORT INFORMATION
  Report Type: Spontaneous
  Country: CN (occurrence: CN)
  Receive Date: 20150501
  Receipt Date: 20150531
  Transmission Date: 20150821
  Serious: Yes (Other)
  Sender: FDA-Public Use
  Company Number: PHHY2015CN051210

PATIENT
  Age: 59 Year
  Weight: 54 kg

DRUGS (1)
  1. LESCOL [Suspect]
     Active Substance: FLUVASTATIN SODIUM
     Indication: PRODUCT USED FOR UNKNOWN INDICATION
     Dosage: 40 MG, BID
     Route: 065
     Dates: start: 20150105, end: 20150122

REACTIONS (3)
  - Pyrexia [Unknown]
  - Discomfort [Unknown]
  - Liver function test abnormal [Recovered/Resolved]
